FAERS Safety Report 6471364-2 (Version None)
Quarter: 2009Q4

REPORT INFORMATION
  Report Type: 
  Country: None (occurrence: None)
  Receive Date: 20091203
  Receipt Date: 20081119
  Transmission Date: 20100525
  Serious: Yes (Hospitalization, Other)
  Sender: FDA-Public Use
  Company Number: US-ELI_LILLY_AND_COMPANY-US200802001831

PATIENT
  Sex: Female
  Weight: 85.714 kg

DRUGS (39)
  1. BYETTA [Suspect]
     Indication: TYPE 2 DIABETES MELLITUS
     Dosage: 5 UG, 2/D
     Route: 058
     Dates: start: 20051001, end: 20080101
  2. HUMULIN MIX 30/70 [Concomitant]
     Indication: TYPE 2 DIABETES MELLITUS
     Dosage: UNK, DAILY (1/D)
  3. AMARYL [Concomitant]
     Indication: TYPE 2 DIABETES MELLITUS
     Dosage: 2 MG, DAILY (1/D)
     Dates: start: 20070101
  4. LUNESTA [Concomitant]
     Indication: INSOMNIA
     Dosage: 3 MG, EACH EVENING
  5. HYDROXYZINE /00058402/ [Concomitant]
     Indication: PRURITUS
     Dosage: 50 MG, UNK
  6. LIBRAX [Concomitant]
     Indication: IRRITABLE BOWEL SYNDROME
     Dosage: UNK, OTHER
  7. KLOR-CON [Concomitant]
     Dosage: 10 MEQ, UNK
  8. LEVBID [Concomitant]
     Indication: IRRITABLE BOWEL SYNDROME
     Dosage: 375 MG, 2/D
  9. OXYCODONE HCL [Concomitant]
     Indication: LUMBAR SPINAL STENOSIS
     Dosage: 5 MG, UNK
  10. MORPHINE SULFATE [Concomitant]
     Indication: LUMBAR SPINAL STENOSIS
     Dosage: 15 MG, UNK
  11. PHENERGAN HCL [Concomitant]
     Indication: NAUSEA
     Dosage: 25 MG, AS NEEDED
  12. NEXIUM [Concomitant]
     Indication: GASTROOESOPHAGEAL REFLUX DISEASE
     Dosage: 40 MG, UNK
  13. NEXIUM [Concomitant]
     Dosage: 30 MG, 2/D
     Route: 048
  14. ADVAIR DISKUS 100/50 [Concomitant]
     Indication: ASTHMA
     Dosage: UNK, 2/D
  15. ASPIRIN [Concomitant]
     Indication: PROPHYLAXIS
     Dosage: 81 MG, DAILY (1/D)
     Route: 048
  16. AMBIEN [Concomitant]
     Dosage: 6.25 MG, EACH EVENING
  17. COMBIVENT [Concomitant]
     Indication: ASTHMA
     Dosage: UNK, 4/D
  18. CYMBALTA [Concomitant]
     Indication: DEPRESSION
     Dosage: 60 MG, DAILY (1/D)
     Route: 048
     Dates: start: 20070101, end: 20080101
  19. CYMBALTA [Concomitant]
     Dosage: 30 MG, DAILY (1/D)
     Dates: start: 20080101, end: 20080101
  20. DIOVAN [Concomitant]
     Indication: HYPERTENSION
     Dosage: 80 MG, UNK
  21. FOSAMAX [Concomitant]
     Indication: OSTEOPENIA
     Dosage: 70 MG, UNK
  22. FUROSEMIDE [Concomitant]
     Dosage: 20 MG, UNK
  23. NEURONTIN [Concomitant]
     Indication: CLUSTER HEADACHE
     Dosage: 1200 MG, 2/D
  24. SKELAXIN [Concomitant]
     Indication: MUSCLE SPASMS
     Dosage: 800 MG, UNK
  25. TOPAMAX [Concomitant]
     Indication: CLUSTER HEADACHE
     Dosage: 100 MG, UNK
  26. SONATA [Concomitant]
     Dosage: 10 MG, UNK
  27. LANTUS [Concomitant]
     Indication: TYPE 2 DIABETES MELLITUS
     Dosage: 10 U, DAILY (1/D)
  28. EFFEXOR [Concomitant]
     Indication: DEPRESSION
     Dosage: 225 MG, UNK
  29. EFFEXOR [Concomitant]
     Dosage: 75 MG, DAILY (1/D)
     Dates: start: 20080101
  30. OXYCONTIN [Concomitant]
     Indication: CLUSTER HEADACHE
     Dosage: 10 MG, AS NEEDED
  31. DILAUDID [Concomitant]
     Indication: PAIN
     Dosage: 2 MG, AS NEEDED
  32. BENADRYL [Concomitant]
     Indication: PRURITUS
     Dosage: 50 MG, AS NEEDED
  33. FLEXERIL [Concomitant]
     Indication: MUSCLE SPASMS
     Dosage: 10 MG, AS NEEDED
  34. OXYGEN [Concomitant]
     Indication: SLEEP APNOEA SYNDROME
     Dosage: 4 LITER, EACH EVENING
     Route: 045
     Dates: start: 20030101
  35. HYOSCYAMINE [Concomitant]
     Indication: IRRITABLE BOWEL SYNDROME
     Dosage: 0.375 MG, DAILY (1/D)
     Route: 048
  36. AMARYL [Concomitant]
     Indication: IRRITABLE BOWEL SYNDROME
     Dosage: 5 MG, UNK
  37. PREDNISONE [Concomitant]
     Indication: URTICARIA
     Dosage: UNK, AS NEEDED
  38. ANTIHISTAMINES [Concomitant]
     Indication: PRURITUS
     Dosage: UNK, AS NEEDED
  39. ALTACE [Concomitant]
     Indication: HYPERTENSION
     Dates: end: 20070101

REACTIONS (8)
  - BILE DUCT STENOSIS [None]
  - CHRONIC HEPATITIS [None]
  - FIBROMYALGIA [None]
  - FLANK PAIN [None]
  - HEPATIC CIRRHOSIS [None]
  - PANCREATIC DUCT STENOSIS [None]
  - SPHINCTER OF ODDI DYSFUNCTION [None]
  - WEIGHT DECREASED [None]
